FAERS Safety Report 7508176-4 (Version None)
Quarter: 2011Q2

REPORT INFORMATION
  Report Type: 
  Country: None (occurrence: None)
  Receive Date: 20110520
  Receipt Date: 20110505
  Transmission Date: 20111010
  Serious: Yes (Death, Life-Threatening, Hospitalization, Other)
  Sender: FDA-Public Use
  Company Number: 2011MA005441

PATIENT
  Age: 49 Year
  Sex: Female

DRUGS (3)
  1. HYDROCHLOROTHIAZIDE [Concomitant]
  2. LISINOPRIL [Concomitant]
  3. METFORMIN HYDROCHLORIDE [Suspect]
     Dosage: 500 MG

REACTIONS (15)
  - LACTIC ACIDOSIS [None]
  - NAUSEA [None]
  - TACHYCARDIA [None]
  - BLOOD PRESSURE SYSTOLIC INCREASED [None]
  - BLOOD GLUCOSE INCREASED [None]
  - OVERDOSE [None]
  - VOMITING [None]
  - RENAL FAILURE ACUTE [None]
  - HYPOTENSION [None]
  - DRUG LEVEL ABOVE THERAPEUTIC [None]
  - DIARRHOEA [None]
  - PULSELESS ELECTRICAL ACTIVITY [None]
  - TRICUSPID VALVE INCOMPETENCE [None]
  - TACHYPNOEA [None]
  - CONTINUOUS HAEMODIAFILTRATION [None]
